FAERS Safety Report 8875548 (Version 3)
Quarter: 2012Q4

REPORT INFORMATION
  Report Type: 
  Country: AR (occurrence: AR)
  Receive Date: 20121023
  Receipt Date: 20121108
  Transmission Date: 20130627
  Serious: Yes (Other)
  Sender: FDA-Public Use
  Company Number: PHHY2012AR094551

PATIENT
  Age: 62 Year
  Sex: Male

DRUGS (1)
  1. LAPENAX [Suspect]
     Indication: MENTAL DISORDER
     Dates: start: 20100120

REACTIONS (5)
  - Furuncle [Recovered/Resolved]
  - Anaemia [Recovered/Resolved]
  - Leukocytosis [Recovered/Resolved]
  - Neutrophil count increased [Recovered/Resolved]
  - White blood cell count increased [Recovered/Resolved]
